FAERS Safety Report 11295422 (Version 1)
Quarter: 2015Q3

REPORT INFORMATION
  Report Type: Spontaneous
  Country: US (occurrence: None)
  Receive Date: 20150722
  Receipt Date: 20150722
  Transmission Date: 20151125
  Serious: Yes (Hospitalization)
  Sender: FDA-Public Use
  Company Number: None

PATIENT
  Age: 63 Year
  Sex: Male
  Weight: 130.9 kg

DRUGS (1)
  1. SULFAMETHOXAZOLE/TRIMETHOPRIM [Suspect]
     Active Substance: SULFAMETHOXAZOLE\TRIMETHOPRIM
     Dosage: 800/160 MG
     Route: 048
     Dates: start: 20120611, end: 20120616

REACTIONS (13)
  - Renal impairment [None]
  - Cough [None]
  - Staphylococcal infection [None]
  - Fluid overload [None]
  - Feeling abnormal [None]
  - Dyspnoea [None]
  - Orthopnoea [None]
  - Abscess [None]
  - Cellulitis [None]
  - Oedema peripheral [None]
  - Blister [None]
  - Pruritus [None]
  - Somnolence [None]

NARRATIVE: CASE EVENT DATE: 20120613
